FAERS Safety Report 25253543 (Version 1)
Quarter: 2025Q2

REPORT INFORMATION
  Report Type: Spontaneous
  Country: JP (occurrence: JP)
  Receive Date: 20250430
  Receipt Date: 20250430
  Transmission Date: 20250716
  Serious: Yes (Other)
  Sender: GENMAB
  Company Number: JP-GENMAB-2025-01165

PATIENT

DRUGS (1)
  1. EPKINLY [Suspect]
     Active Substance: EPCORITAMAB-BYSP
     Indication: Lymphoma
     Route: 065

REACTIONS (1)
  - Lymphoma [Unknown]
